FAERS Safety Report 4450616-1 (Version None)
Quarter: 2004Q3

REPORT INFORMATION
  Report Type: 
  Country: None (occurrence: None)
  Receive Date: 20040914
  Receipt Date: 20040224
  Transmission Date: 20050211
  Serious: Yes (Hospitalization)
  Sender: FDA-Public Use
  Company Number: 163-20785-04020675

PATIENT
  Age: 54 Year
  Sex: Male
  Weight: 82.1 kg

DRUGS (25)
  1. THALOMID [Suspect]
     Indication: MULTIPLE MYELOMA
     Dosage: 100 MG, DAILY, ORAL
     Route: 048
     Dates: start: 20030602
  2. MELPHALAN (MELPHALAN) (UNKNOWN) [Suspect]
     Indication: MULTIPLE MYELOMA
     Dosage: 200 MG/M2, ORAL
     Route: 048
     Dates: start: 20030428, end: 20030428
  3. FOLATE (FOLATE SODIUM) (UNKNOWN) [Concomitant]
  4. ACYCLOVIR (ACICLOVIR) (UNKNOWN) [Concomitant]
  5. PROTONIX (PANTOPRAZOLE) (UNKNOWN) [Concomitant]
  6. COUMADIN (WARFARIN SODIUM) (UNKNOWN) [Concomitant]
  7. LIPITOR [Concomitant]
  8. NIFEREX (POLYSACCHARIDE-IRON COMPLEX) (UNKNOWN) [Concomitant]
  9. NEURONTIN [Concomitant]
  10. PROCRIT [Concomitant]
  11. LIDODERM (LIDOCAINE) (UNKNOWN) [Concomitant]
  12. MULTIVITAMIN (MULTIVITAMINS) (UNKNOWN) [Concomitant]
  13. VITAMIN E (TOCOPHEROL) (UNKNOWN) [Concomitant]
  14. CALCIUM (CALCIUM) (UNKNOWN) [Concomitant]
  15. METAMUCIL (METAMUCIL ^PROCTER + GAMBLE^) (UNKNOWN) [Concomitant]
  16. VANCOMYCIN [Concomitant]
  17. AREDIA (PAMIDRONATE DISODIUM) (UNKNOWN) [Concomitant]
  18. LORTAB [Concomitant]
  19. DOXYCYCLINE (DOXYCYCLINE) (UNKNOWN) [Concomitant]
  20. ZOSYN (PIP/TAZO) (UNKNOWN) [Concomitant]
  21. MEDROL (METHYLPREDISOLONE) (UNKNOWN) [Concomitant]
  22. VIOXX [Concomitant]
  23. ZYRTEC (CETIRIZINE HYDROCHLORIDE) (UNKNOWN) [Concomitant]
  24. MAALOX (MAALOX) (UNKNOWN) [Concomitant]
  25. VANCOMYCIN [Concomitant]

REACTIONS (23)
  - ALOPECIA [None]
  - ANAEMIA [None]
  - BACK PAIN [None]
  - BACTERIAL INFECTION [None]
  - CONSTIPATION [None]
  - CONTUSION [None]
  - FEBRILE NEUTROPENIA [None]
  - HEADACHE [None]
  - HYPOAESTHESIA [None]
  - HYPOCALCAEMIA [None]
  - INTERVERTEBRAL DISC SPACE NARROWING [None]
  - INTERVERTEBRAL DISCITIS [None]
  - LOBAR PNEUMONIA [None]
  - MUSCLE SPASMS [None]
  - NAUSEA [None]
  - OESOPHAGITIS [None]
  - OSTEOARTHRITIS [None]
  - OSTEOMYELITIS [None]
  - PARAESTHESIA [None]
  - PHLEBOTHROMBOSIS [None]
  - PNEUMONITIS [None]
  - SINUSITIS [None]
  - STAPHYLOCOCCAL INFECTION [None]
